FAERS Safety Report 4888298-7 (Version None)
Quarter: 2006Q1

REPORT INFORMATION
  Report Type: 
  Country: None (occurrence: None)
  Receive Date: 20060123
  Receipt Date: 20060117
  Transmission Date: 20060701
  Serious: Yes (Other)
  Sender: FDA-Public Use
  Company Number: CA-GLAXOSMITHKLINE-A0589947A

PATIENT
  Age: 36 Year
  Sex: Female

DRUGS (3)
  1. RETROVIR [Suspect]
     Indication: DRUG USE FOR UNKNOWN INDICATION
     Route: 065
     Dates: start: 20060102, end: 20060113
  2. 3TC [Suspect]
     Indication: DRUG USE FOR UNKNOWN INDICATION
     Route: 065
     Dates: start: 20060102, end: 20060113
  3. ZIAGEN [Suspect]
     Indication: DRUG USE FOR UNKNOWN INDICATION
     Route: 065
     Dates: start: 20060102, end: 20060113

REACTIONS (9)
  - BLOOD BILIRUBIN UNCONJUGATED INCREASED [None]
  - CHAPPED LIPS [None]
  - DYSKINESIA [None]
  - EYELID OEDEMA [None]
  - MUSCLE TWITCHING [None]
  - PYREXIA [None]
  - RASH GENERALISED [None]
  - SKIN FISSURES [None]
  - SWELLING FACE [None]
